FAERS Safety Report 6704807-7 (Version None)
Quarter: 2010Q2

REPORT INFORMATION
  Report Type: 
  Country: None (occurrence: None)
  Receive Date: 20100430
  Receipt Date: 20091229
  Transmission Date: 20101027
  Serious: No
  Sender: FDA-Public Use
  Company Number: US-ASTRAZENECA-2009SE33917

PATIENT
  Sex: Male

DRUGS (5)
  1. NEXIUM [Suspect]
     Indication: OESOPHAGEAL PAIN
     Route: 048
     Dates: start: 20091224
  2. NEXIUM [Suspect]
     Indication: CHEST PAIN
     Route: 048
     Dates: start: 20091224
  3. NEXIUM [Suspect]
     Indication: BACK PAIN
     Route: 048
     Dates: start: 20091224
  4. NEXIUM [Suspect]
     Indication: DYSPHONIA
     Route: 048
     Dates: start: 20091224
  5. NEXIUM [Suspect]
     Indication: DYSPHAGIA
     Route: 048
     Dates: start: 20091224

REACTIONS (3)
  - DRUG INEFFECTIVE [None]
  - INSOMNIA [None]
  - SCROTAL INFECTION [None]
